FAERS Safety Report 25042170 (Version 2)
Quarter: 2025Q1

REPORT INFORMATION
  Report Type: Spontaneous
  Country: BE (occurrence: BE)
  Receive Date: 20250305
  Receipt Date: 20250319
  Transmission Date: 20250408
  Serious: Yes (Death, Other)
  Sender: TAKEDA
  Company Number: BE-TAKEDA-2025TUS021987

PATIENT
  Age: 2 Year
  Sex: Male

DRUGS (1)
  1. MARIBAVIR [Suspect]
     Active Substance: MARIBAVIR
     Indication: Cytomegalovirus enteritis
     Dosage: 50 MILLIGRAM, BID
     Dates: start: 20240625, end: 202408

REACTIONS (4)
  - Congenital thymus absence [Fatal]
  - Cytomegalovirus infection reactivation [Unknown]
  - Cytomegalovirus colitis [Unknown]
  - Product use issue [Unknown]

NARRATIVE: CASE EVENT DATE: 20240601
